FAERS Safety Report 5929790-3 (Version None)
Quarter: 2008Q3

REPORT INFORMATION
  Report Type: 
  Country: None (occurrence: None)
  Receive Date: 20080930
  Receipt Date: 20080611
  Transmission Date: 20090109
  Serious: Yes (Hospitalization)
  Sender: FDA-Public Use
  Company Number: 173373USA

PATIENT
  Sex: Female

DRUGS (3)
  1. DEXAMETHASONE SODIUM PHOSPHATE [Suspect]
  2. GENSPAR [Concomitant]
  3. CHEMOTHERAPY (NOS) [Concomitant]

REACTIONS (1)
  - BLOOD POTASSIUM DECREASED [None]
